FAERS Safety Report 20605633 (Version 1)
Quarter: 2022Q1

REPORT INFORMATION
  Report Type: Spontaneous
  Country: US (occurrence: US)
  Receive Date: 20220317
  Receipt Date: 20220317
  Transmission Date: 20220423
  Serious: Yes (Hospitalization, Other)
  Sender: FDA-Public Use
  Company Number: US-AMGEN-USASP2022045592

PATIENT
  Age: 71 Year
  Sex: Female

DRUGS (2)
  1. NEULASTA [Suspect]
     Active Substance: PEGFILGRASTIM
     Indication: Neutropenia
     Dosage: UNK, AFTER CHEMO
     Route: 065
     Dates: start: 202111
  2. TAXOTERE [Concomitant]
     Active Substance: DOCETAXEL
     Indication: Breast cancer
     Dosage: UNK , Q3WK
     Route: 065

REACTIONS (6)
  - Abscess intestinal [Not Recovered/Not Resolved]
  - Blood potassium decreased [Unknown]
  - Anaemia [Unknown]
  - Fall [Unknown]
  - Bone pain [Unknown]
  - Injection site pain [Unknown]
